FAERS Safety Report 21049586 (Version 2)
Quarter: 2022Q4

REPORT INFORMATION
  Report Type: Spontaneous
  Country: PL (occurrence: None)
  Receive Date: 20220706
  Receipt Date: 20221017
  Transmission Date: 20230113
  Serious: Yes (Hospitalization)
  Sender: FDA-Public Use
  Company Number: PL-ROCHE-2716360

PATIENT
  Age: 42 Year
  Sex: Male
  Weight: 82 kg

DRUGS (2)
  1. HEMLIBRA [Suspect]
     Active Substance: EMICIZUMAB-KXWH
     Indication: Factor VIII deficiency
     Dosage: STUDY HAVEN1
     Route: 065
     Dates: start: 20160421, end: 20200312
  2. HEMLIBRA [Suspect]
     Active Substance: EMICIZUMAB-KXWH
     Dosage: [NPLH] TREATMENT
     Route: 065
     Dates: start: 20200415

REACTIONS (10)
  - Haemarthrosis [Unknown]
  - Pain [Unknown]
  - Sepsis [Unknown]
  - Organ failure [Unknown]
  - COVID-19 [Unknown]
  - Administration site erythema [Unknown]
  - Administration site swelling [Unknown]
  - Condition aggravated [Unknown]
  - Oliguria [Unknown]
  - Abdominal pain [Unknown]
